FAERS Safety Report 9282384 (Version 1)
Quarter: 2013Q2

REPORT INFORMATION
  Report Type: Spontaneous
  Country: US (occurrence: None)
  Receive Date: 20130509
  Receipt Date: 20130509
  Transmission Date: 20140414
  Serious: No
  Sender: FDA-Public Use
  Company Number: None

PATIENT
  Age: 65 Year
  Sex: Male

DRUGS (1)
  1. TECFIDERA [Suspect]
     Indication: MULTIPLE SCLEROSIS
     Dosage: 7 DAYS
     Route: 048
     Dates: start: 20130417

REACTIONS (4)
  - Muscle twitching [None]
  - Dysgraphia [None]
  - Multiple sclerosis relapse [None]
  - Grip strength decreased [None]
